FAERS Safety Report 10205691 (Version 1)
Quarter: 2014Q2

REPORT INFORMATION
  Report Type: Spontaneous
  Country: FR (occurrence: FR)
  Receive Date: 20140530
  Receipt Date: 20140530
  Transmission Date: 20141212
  Serious: Yes (Life-Threatening)
  Sender: FDA-Public Use
  Company Number: FR-ROCHE-1408667

PATIENT
  Age: 91 Year
  Sex: Female

DRUGS (14)
  1. ROCEPHINE [Suspect]
     Indication: PRODUCT USED FOR UNKNOWN INDICATION
     Route: 065
     Dates: start: 20140414, end: 20140416
  2. ROVAMYCINE [Interacting]
     Indication: PRODUCT USED FOR UNKNOWN INDICATION
     Route: 065
     Dates: start: 20140414, end: 20140417
  3. PREVISCAN (FRANCE) [Interacting]
     Indication: PRODUCT USED FOR UNKNOWN INDICATION
     Route: 065
     Dates: end: 20140415
  4. ATORVASTATIN [Concomitant]
     Route: 065
  5. BISOPROLOL [Concomitant]
     Route: 065
  6. CANDESARTAN [Concomitant]
     Route: 065
  7. CARBIMAZOLE [Concomitant]
     Route: 065
  8. DIGOXIN [Concomitant]
     Route: 065
  9. FLUINDIONE [Concomitant]
     Dosage: 0.25 TABLETB DAILY
     Route: 065
  10. FLECAINIDE [Concomitant]
     Route: 065
  11. FUROSEMIDE [Concomitant]
     Route: 065
  12. PARACETAMOL [Concomitant]
     Route: 065
  13. PAROXETINE [Concomitant]
     Route: 065
  14. AMLOR [Concomitant]

REACTIONS (2)
  - Drug interaction [Unknown]
  - Overdose [Recovered/Resolved]
